FAERS Safety Report 11392822 (Version 1)
Quarter: 2015Q3

REPORT INFORMATION
  Report Type: Spontaneous
  Country: FR (occurrence: FR)
  Receive Date: 20150818
  Receipt Date: 20150818
  Transmission Date: 20151125
  Serious: Yes (Death)
  Sender: FDA-Public Use
  Company Number: FR-NOVOPROD-459736

PATIENT
  Sex: Male

DRUGS (1)
  1. NOVOSEVEN [Suspect]
     Active Substance: COAGULATION FACTOR VIIA RECOMBINANT HUMAN
     Indication: POST PROCEDURAL HAEMORRHAGE
     Dosage: UNK
     Route: 065
     Dates: start: 20120819

REACTIONS (2)
  - Medical device site thrombosis [Fatal]
  - Atrial thrombosis [Fatal]

NARRATIVE: CASE EVENT DATE: 20120820
